FAERS Safety Report 9248785 (Version 1)
Quarter: 2013Q2

REPORT INFORMATION
  Report Type: Spontaneous
  Country: US (occurrence: US)
  Receive Date: 20130423
  Receipt Date: 20130423
  Transmission Date: 20140414
  Serious: Yes (Other)
  Sender: FDA-Public Use
  Company Number: US-SANOFI-AVENTIS-2013SA001416

PATIENT
  Age: 44 Year
  Sex: Female
  Weight: 113 kg

DRUGS (1)
  1. ZOLPIDEM TARTRATE [Suspect]
     Dosage: THE EXACT DRUG FORMULATION REGULAR VS. EXTENDED NEEDS A FURTHER CONFIRMATION.
     Route: 048
     Dates: start: 20021101

REACTIONS (10)
  - Homicidal ideation [Not Recovered/Not Resolved]
  - Dependence [Not Recovered/Not Resolved]
  - Hypnagogic hallucination [Unknown]
  - Feeling abnormal [Unknown]
  - Abnormal sleep-related event [Not Recovered/Not Resolved]
  - Wrong technique in drug usage process [Unknown]
  - Amnesia [Unknown]
  - Sleep-related eating disorder [Unknown]
  - Somnambulism [Not Recovered/Not Resolved]
  - Somnambulism [Not Recovered/Not Resolved]
